FAERS Safety Report 15745340 (Version 1)
Quarter: 2018Q4

REPORT INFORMATION
  Report Type: Spontaneous
  Country: US (occurrence: US)
  Receive Date: 20181220
  Receipt Date: 20181220
  Transmission Date: 20190205
  Serious: Yes (Hospitalization)
  Sender: FDA-Public Use
  Company Number: None

PATIENT
  Age: 52 Year
  Sex: Female

DRUGS (18)
  1. FEROSUL 325MG [Concomitant]
  2. ANORO ELLIPT AER 62.5-25 [Concomitant]
  3. BUPROPION 150MG [Concomitant]
     Active Substance: BUPROPION HYDROCHLORIDE
  4. MECLIZINE 12.5MG [Concomitant]
  5. MONTELUKAST [Concomitant]
     Active Substance: MONTELUKAST SODIUM
  6. MOPHINE SUL 15MG [Concomitant]
  7. SERTRALINE 50MG [Concomitant]
     Active Substance: SERTRALINE HYDROCHLORIDE
  8. VITAMIN D 50000UNT [Concomitant]
  9. AZITHROMYCIN 500MG [Concomitant]
     Active Substance: AZITHROMYCIN
  10. DULOXETINE 20MG [Concomitant]
     Active Substance: DULOXETINE
  11. TRUPLUS LANC MIS 30MG [Concomitant]
  12. TOBRAMYCIN. [Suspect]
     Active Substance: TOBRAMYCIN
     Indication: ASTHMA
     Route: 055
     Dates: start: 20180913
  13. MELOXICAM 15MG [Concomitant]
     Active Substance: MELOXICAM
  14. METOPROL SUC 25MG [Concomitant]
  15. PANTOPRAZOLE 40MG [Concomitant]
     Active Substance: PANTOPRAZOLE SODIUM
  16. ALPRAZOLAM 1MG [Concomitant]
     Active Substance: ALPRAZOLAM
  17. METFORMIN 500MG [Concomitant]
     Active Substance: METFORMIN HYDROCHLORIDE
  18. SODIUM CHLOR NEB 3% [Concomitant]

REACTIONS (1)
  - Hospitalisation [None]

NARRATIVE: CASE EVENT DATE: 20181130
